FAERS Safety Report 21831707 (Version 1)
Quarter: 2023Q1

REPORT INFORMATION
  Report Type: Spontaneous
  Country: US (occurrence: US)
  Receive Date: 20230106
  Receipt Date: 20230106
  Transmission Date: 20230417
  Serious: Yes (Other)
  Sender: FDA-Public Use
  Company Number: US-JNJFOC-20221260938

PATIENT
  Age: 5 Decade
  Sex: Female
  Weight: 86.714 kg

DRUGS (2)
  1. SPRAVATO [Suspect]
     Active Substance: ESKETAMINE
     Indication: Depression
     Dosage: 56 MG, 10 DOSES
     Dates: start: 20220406, end: 20220517
  2. SPRAVATO [Suspect]
     Active Substance: ESKETAMINE
     Dosage: 84 MG, 26 DOSES
     Dates: start: 20220524, end: 20221227

REACTIONS (6)
  - Pancreatitis chronic [Unknown]
  - Dyskinesia [Unknown]
  - Dizziness [Unknown]
  - Feeling abnormal [Unknown]
  - Dysgeusia [Unknown]
  - Panic attack [Unknown]

NARRATIVE: CASE EVENT DATE: 20220101
